FAERS Safety Report 8736685 (Version 3)
Quarter: 2012Q4

REPORT INFORMATION
  Report Type: 
  Country: DE (occurrence: NO)
  Receive Date: 20120822
  Receipt Date: 20120926
  Transmission Date: 20130627
  Serious: Yes (Hospitalization)
  Sender: FDA-Public Use
  Company Number: NO-BRISTOL-MYERS SQUIBB COMPANY-16859423

PATIENT
  Age: 80 Year
  Sex: Female

DRUGS (9)
  1. METFORMIN HCL [Suspect]
     Dosage: Withdrawn for 4 days
Interrupted on 23Jul2012
     Route: 048
  2. ESIDREX [Suspect]
     Dosage: Withdrawn for 4 days
Interrupted on 23Jul2012
     Route: 048
     Dates: end: 20120723
  3. BURINEX [Suspect]
     Route: 048
  4. DIGIMERCK [Concomitant]
     Dosage: 0.05mg:every monday,tue,thur,fri
     Route: 048
  5. SERETIDE [Concomitant]
     Indication: CHRONIC OBSTRUCTIVE PULMONARY DISEASE
     Route: 055
  6. SIMVASTATIN [Concomitant]
     Dosage: once
     Route: 048
  7. VENTOLINE [Concomitant]
     Route: 055
  8. SPIRIVA [Concomitant]
  9. MAREVAN [Concomitant]
     Route: 048
     Dates: end: 20120718

REACTIONS (2)
  - Dehydration [Recovering/Resolving]
  - Hypokalaemia [Recovering/Resolving]
